FAERS Safety Report 9981103 (Version 1)
Quarter: 2014Q1

REPORT INFORMATION
  Report Type: Spontaneous
  Country: GB (occurrence: GB)
  Receive Date: 20140307
  Receipt Date: 20140307
  Transmission Date: 20141002
  Serious: Yes (Other)
  Sender: FDA-Public Use
  Company Number: GB-ASTELLAS-2014EU001980

PATIENT
  Age: 44 Year
  Sex: Male

DRUGS (12)
  1. TACROLIMUS SYSTEMIC [Suspect]
     Indication: IMMUNOSUPPRESSION
     Dosage: UNK
     Route: 065
  2. MYCOPHENOLATE MOFETIL [Suspect]
     Indication: IMMUNOSUPPRESSION
     Dosage: UNK
     Route: 065
  3. METHYLPREDNISOLONE [Suspect]
     Indication: IMMUNE TOLERANCE INDUCTION
     Dosage: 500 MG, CYCLIC
     Route: 051
  4. BASILIXIMAB [Suspect]
     Indication: IMMUNE TOLERANCE INDUCTION
     Dosage: UNK
     Route: 051
  5. CO-TRIMOXAZOLE [Suspect]
     Indication: ANTIFUNGAL PROPHYLAXIS
     Dosage: UNK
     Route: 048
  6. NYSTATIN [Suspect]
     Indication: ANTIFUNGAL PROPHYLAXIS
     Dosage: UNK
     Route: 048
  7. LANSOPRAZOLE [Concomitant]
     Dosage: 30 MG, UNKNOWN/D
     Route: 065
  8. AMLODIPINE [Concomitant]
     Dosage: 10 MG, UNKNOWN/D
     Route: 065
  9. DOXAZOSIN [Concomitant]
     Dosage: 8 MG, UNKNOWN/D
     Route: 065
  10. ALFACALCIDOL [Concomitant]
     Dosage: 1 UG, UNKNOWN/D
     Route: 065
  11. METFORMIN [Concomitant]
     Dosage: 1 G, UNKNOWN/D
     Route: 065
  12. FOLIC ACID [Concomitant]
     Dosage: 5 MG, UNKNOWN/D
     Route: 065

REACTIONS (1)
  - Guillain-Barre syndrome [Recovered/Resolved]
